FAERS Safety Report 25870676 (Version 1)
Quarter: 2025Q4

REPORT INFORMATION
  Report Type: Spontaneous
  Country: US (occurrence: US)
  Receive Date: 20251001
  Receipt Date: 20251001
  Transmission Date: 20260117
  Serious: Yes (Hospitalization, Other)
  Sender: DR REDDYS
  Company Number: US-DRL-USA-USA/2025/09/014791

PATIENT
  Age: 76 Year
  Sex: Female
  Weight: 102.05 kg

DRUGS (6)
  1. CIPROFLOXACIN HYDROCHLORIDE [Suspect]
     Active Substance: CIPROFLOXACIN HYDROCHLORIDE
     Indication: Product used for unknown indication
     Route: 065
  2. OXYCODONE [Suspect]
     Active Substance: OXYCODONE
     Indication: Product used for unknown indication
     Route: 065
  3. DUPIXENT [Suspect]
     Active Substance: DUPILUMAB
     Indication: Illness
     Dosage: STRENGTH 300 MG/2 ML AT A DOSE OF 300 MG QOW
     Route: 058
  4. NICKEL [Suspect]
     Active Substance: NICKEL
     Indication: Product used for unknown indication
     Route: 065
  5. HYDROCODONE [Suspect]
     Active Substance: HYDROCODONE
     Indication: Product used for unknown indication
     Route: 065
  6. CEPHALEXIN [Suspect]
     Active Substance: CEPHALEXIN
     Indication: Product used for unknown indication
     Route: 065

REACTIONS (14)
  - Drug dependence [Unknown]
  - Hypertension [Recovered/Resolved]
  - Hallucination, visual [Recovered/Resolved]
  - Hypertensive urgency [Recovered/Resolved]
  - Giant cell arteritis [Recovered/Resolved]
  - Tension headache [Recovered/Resolved]
  - Throat irritation [Unknown]
  - Rash [Unknown]
  - Erythema [Unknown]
  - Pruritus [Unknown]
  - Hot flush [Unknown]
  - Dyspnoea [Unknown]
  - Oedema [Unknown]
  - Gout [Unknown]

NARRATIVE: CASE EVENT DATE: 20200101
